FAERS Safety Report 7228015-9 (Version None)
Quarter: 2011Q1

REPORT INFORMATION
  Report Type: 
  Country: None (occurrence: None)
  Receive Date: 20110114
  Receipt Date: 20110110
  Transmission Date: 20110831
  Serious: Yes (Hospitalization)
  Sender: FDA-Public Use
  Company Number: DK-PFIZER INC-2011006550

PATIENT
  Sex: Female
  Weight: 72.6 kg

DRUGS (4)
  1. CALCIUM [Concomitant]
     Dosage: 2 TABLETS DAILY
     Route: 048
     Dates: start: 20050120
  2. ELTROXIN [Concomitant]
     Dosage: 100 UG, DAILY
     Route: 048
     Dates: start: 19930210
  3. SOMATROPIN [Suspect]
     Indication: GROWTH HORMONE DEFICIENCY
     Dosage: 0.4 MG, 1X/DAY
     Dates: start: 19961104
  4. HYDROCORTISON [Concomitant]
     Dosage: 20 MG, DAILY
     Route: 048
     Dates: start: 19940427

REACTIONS (1)
  - BLOOD CORTISOL DECREASED [None]
